FAERS Safety Report 11149395 (Version 1)
Quarter: 2015Q2

REPORT INFORMATION
  Report Type: Not Available
  Country: FR (occurrence: FR)
  Receive Date: 20150529
  Receipt Date: 20150529
  Transmission Date: 20150821
  Serious: Yes (Life-Threatening)
  Sender: FDA-Public Use
  Company Number: FR-MUNDIPHARMA DS AND PHARMACOVIGILANCE-GBR-2015-0028252

PATIENT
  Age: 74 Year
  Sex: Female

DRUGS (10)
  1. RIVOTRIL [Suspect]
     Active Substance: CLONAZEPAM
     Indication: PAIN
     Dosage: 2.5 MG/ML 16DF ONCE DAILY
     Route: 048
  2. VALIUM [Suspect]
     Active Substance: DIAZEPAM
     Indication: MUSCLE SPASMS
     Dosage: 1 DF, BID
     Route: 048
     Dates: end: 20050204
  3. LIORESAL [Suspect]
     Active Substance: BACLOFEN
     Indication: MUSCLE SPASMS
     Dosage: 10 MG EVERY THREE DAYS
     Route: 048
  4. IMPORTAL [Concomitant]
     Active Substance: LACTITOL
     Route: 065
  5. SEVREDOL 10 MG, COMPRIME PELLICULE SECABLE [Suspect]
     Active Substance: MORPHINE
     Indication: PAIN
     Dosage: 1 DF, TID
     Route: 048
     Dates: end: 20050204
  6. DEROXAT [Suspect]
     Active Substance: PAROXETINE HYDROCHLORIDE
     Indication: DEPRESSION
     Dosage: 20 MG, 1 DF BID
     Route: 048
  7. GINKGO EXTRACT\HEPTAMINOL\TROXERUTIN [Suspect]
     Active Substance: GINKGO\HEPTAMINOL\TROXERUTIN
     Indication: PRODUCT USED FOR UNKNOWN INDICATION
     Dosage: 1 DF, BID
     Route: 048
     Dates: end: 20050204
  8. AZANTAC [Concomitant]
     Active Substance: RANITIDINE HYDROCHLORIDE
     Route: 065
  9. APROVEL [Concomitant]
     Active Substance: IRBESARTAN
     Route: 065
  10. MOSCONTIN 10 MG, COMPRIME ENROBE A LIBERATION PROLONGEE [Suspect]
     Active Substance: MORPHINE SULFATE
     Indication: PAIN
     Dosage: 1 DF, TID
     Route: 048
     Dates: end: 20050204

REACTIONS (3)
  - Bronchospasm [Recovered/Resolved]
  - Respiratory distress [Recovered/Resolved]
  - Acidosis [Recovered/Resolved]

NARRATIVE: CASE EVENT DATE: 20050204
